FAERS Safety Report 7818246-9 (Version None)
Quarter: 2011Q4

REPORT INFORMATION
  Report Type: 
  Country: None (occurrence: None)
  Receive Date: 20111013
  Receipt Date: 20111006
  Transmission Date: 20120403
  Serious: No
  Sender: FDA-Public Use
  Company Number: 2011SP029222

PATIENT
  Age: 42 Year
  Sex: Female
  Weight: 85 kg

DRUGS (7)
  1. BRIMONIDINE TARTRATE [Concomitant]
  2. OXCARBAZEPINE [Concomitant]
  3. CERAZETTE (DESOGESTREL/ ) [Suspect]
     Indication: CONTRACEPTION
     Dosage: QD;PO ; BID;PO
     Route: 048
     Dates: start: 20110613, end: 20110701
  4. CERAZETTE (DESOGESTREL/ ) [Suspect]
     Indication: AMENORRHOEA
     Dosage: QD;PO ; BID;PO
     Route: 048
     Dates: start: 20110613, end: 20110701
  5. CERAZETTE (DESOGESTREL/ ) [Suspect]
     Indication: CONTRACEPTION
     Dosage: QD;PO ; BID;PO
     Route: 048
     Dates: start: 20101221, end: 20110612
  6. CERAZETTE (DESOGESTREL/ ) [Suspect]
     Indication: AMENORRHOEA
     Dosage: QD;PO ; BID;PO
     Route: 048
     Dates: start: 20101221, end: 20110612
  7. GARDENAL /00023201/ [Concomitant]

REACTIONS (7)
  - MENSTRUATION IRREGULAR [None]
  - STRESS [None]
  - DRUG INTERACTION [None]
  - INAPPROPRIATE SCHEDULE OF DRUG ADMINISTRATION [None]
  - HEADACHE [None]
  - EMOTIONAL DISORDER [None]
  - DYSMENORRHOEA [None]
